FAERS Safety Report 7319451-0 (Version None)
Quarter: 2011Q1

REPORT INFORMATION
  Report Type: 
  Country: None (occurrence: None)
  Receive Date: 20110228
  Receipt Date: 20100325
  Transmission Date: 20110831
  Serious: No
  Sender: FDA-Public Use
  Company Number: A0852795A

PATIENT
  Age: 38 Year
  Sex: Female

DRUGS (4)
  1. TOPAMAX [Concomitant]
  2. TRAZODONE [Concomitant]
  3. CLONOPIN [Concomitant]
  4. LAMICTAL [Suspect]
     Indication: DEPRESSION
     Dosage: 300MG SINGLE DOSE
     Route: 048
     Dates: start: 20100201

REACTIONS (2)
  - ACCIDENTAL OVERDOSE [None]
  - NO ADVERSE EVENT [None]
